FAERS Safety Report 16775877 (Version 1)
Quarter: 2019Q3

REPORT INFORMATION
  Report Type: Spontaneous
  Country: US (occurrence: US)
  Receive Date: 20190716
  Receipt Date: 20190716
  Transmission Date: 20191005
  Serious: Yes (Life-Threatening)
  Sender: FDA-Public Use
  Company Number: None

PATIENT
  Age: 50 Year
  Sex: Female
  Weight: 70.31 kg

DRUGS (11)
  1. KEFLEX [Suspect]
     Active Substance: CEPHALEXIN
     Indication: NO ADVERSE EVENT
  2. KLONOPIN [Concomitant]
     Active Substance: CLONAZEPAM
  3. NUEROTIN [Concomitant]
  4. ZITHROMAX [Suspect]
     Active Substance: AZITHROMYCIN DIHYDRATE
  5. MOTRIN [Concomitant]
     Active Substance: IBUPROFEN
  6. PROTONIX [Concomitant]
     Active Substance: PANTOPRAZOLE SODIUM
  7. ADDERALL [Concomitant]
     Active Substance: AMPHETAMINE ASPARTATE\AMPHETAMINE SULFATE\DEXTROAMPHETAMINE SACCHARATE\DEXTROAMPHETAMINE SULFATE
  8. FLUCONOZOLE [Concomitant]
  9. GARLIC. [Concomitant]
     Active Substance: GARLIC
  10. FLAGYL [Concomitant]
     Active Substance: METRONIDAZOLE\METRONIDAZOLE HYDROCHLORIDE
  11. PREDNISONE. [Suspect]
     Active Substance: PREDNISONE

REACTIONS (1)
  - No adverse event [None]

NARRATIVE: CASE EVENT DATE: 20190714
